FAERS Safety Report 7790552-6 (Version None)
Quarter: 2011Q3

REPORT INFORMATION
  Report Type: 
  Country: None (occurrence: None)
  Receive Date: 20110930
  Receipt Date: 20100528
  Transmission Date: 20111222
  Serious: Yes (Other)
  Sender: FDA-Public Use
  Company Number: US-JNJFOC-20110909915

PATIENT
  Sex: Female

DRUGS (2)
  1. CHILDREN'S BENADRYL ALLERGY [Suspect]
     Route: 048
  2. CHILDREN'S BENADRYL ALLERGY [Suspect]
     Indication: PRODUCT USED FOR UNKNOWN INDICATION
     Route: 048

REACTIONS (4)
  - PRODUCT QUALITY ISSUE [None]
  - ABNORMAL LOSS OF WEIGHT [None]
  - MALAISE [None]
  - DYSPNOEA [None]
